FAERS Safety Report 25508151 (Version 1)
Quarter: 2025Q3

REPORT INFORMATION
  Report Type: Spontaneous
  Country: US (occurrence: US)
  Receive Date: 20250703
  Receipt Date: 20250703
  Transmission Date: 20251021
  Serious: No
  Sender: ABBVIE
  Company Number: US-ABBVIE-6349986

PATIENT

DRUGS (1)
  1. BOTOX COSMETIC [Suspect]
     Active Substance: ONABOTULINUMTOXINA
     Indication: Temporomandibular pain and dysfunction syndrome
     Route: 065

REACTIONS (4)
  - Multiple use of single-use product [Unknown]
  - Off label use [Unknown]
  - Poor quality product administered [Unknown]
  - Incorrect product administration duration [Unknown]
